FAERS Safety Report 9832827 (Version 1)
Quarter: 2014Q1

REPORT INFORMATION
  Report Type: Spontaneous
  Country: DE (occurrence: DE)
  Receive Date: 20140121
  Receipt Date: 20140121
  Transmission Date: 20141002
  Serious: Yes (Other)
  Sender: FDA-Public Use
  Company Number: DE-GLAXOSMITHKLINE-D0082498A

PATIENT
  Age: 69 Year
  Sex: Female

DRUGS (5)
  1. REQUIP [Suspect]
     Indication: PARKINSON^S DISEASE
     Dosage: 16MG PER DAY
     Route: 065
  2. MAO INHIBITORS [Concomitant]
     Route: 065
  3. AZILECT [Concomitant]
     Dosage: 1MG PER DAY
     Route: 065
  4. MADOPAR [Concomitant]
     Dosage: 50MG SIX TIMES PER DAY
     Route: 065
  5. HOMEOPATHIC MEDICATION [Concomitant]
     Route: 065

REACTIONS (6)
  - Sudden onset of sleep [Unknown]
  - Coordination abnormal [Unknown]
  - Muscle rigidity [Unknown]
  - Sleep disorder [Unknown]
  - Daydreaming [Unknown]
  - Decreased appetite [Unknown]
